FAERS Safety Report 5342597-3 (Version None)
Quarter: 2007Q2

REPORT INFORMATION
  Report Type: 
  Country: None (occurrence: None)
  Receive Date: 20070601
  Receipt Date: 20070316
  Transmission Date: 20071010
  Serious: No
  Sender: FDA-Public Use
  Company Number: A0643535A

PATIENT
  Age: 57 Year
  Sex: Female

DRUGS (2)
  1. AUGMENTIN XR [Suspect]
     Dosage: 2G TWICE PER DAY
     Route: 048
     Dates: end: 20070314
  2. MULTIPLE MEDICATIONS [Concomitant]

REACTIONS (1)
  - THERAPEUTIC RESPONSE DELAYED [None]
